FAERS Safety Report 23351232 (Version 2)
Quarter: 2025Q2

REPORT INFORMATION
  Report Type: Spontaneous
  Country: CN (occurrence: CN)
  Receive Date: 20231229
  Receipt Date: 20250619
  Transmission Date: 20250717
  Serious: Yes (Other)
  Sender: NOVARTIS
  Company Number: CN-002147023-NVSC2023CN275783

PATIENT
  Age: 55 Year
  Sex: Male

DRUGS (2)
  1. GLIVEC [Suspect]
     Active Substance: IMATINIB MESYLATE
     Indication: Gastrointestinal stromal tumour
     Route: 048
     Dates: start: 20180907
  2. GLIVEC [Suspect]
     Active Substance: IMATINIB MESYLATE
     Route: 048

REACTIONS (2)
  - Gastrointestinal stromal tumour [Unknown]
  - Disease recurrence [Unknown]
